FAERS Safety Report 9800075 (Version 1)
Quarter: 2014Q1

REPORT INFORMATION
  Report Type: Spontaneous
  Country: US (occurrence: US)
  Receive Date: 20140106
  Receipt Date: 20140106
  Transmission Date: 20141002
  Serious: No
  Sender: FDA-Public Use
  Company Number: US-GILEAD-2010-0032179

PATIENT
  Age: 80 Year
  Sex: Female
  Weight: 48.99 kg

DRUGS (5)
  1. LETAIRIS [Suspect]
     Indication: PULMONARY ARTERIAL HYPERTENSION
     Route: 048
     Dates: start: 20100909
  2. ASPIRIN [Concomitant]
  3. TOPROL XL [Concomitant]
  4. TYLENOL EX STRENGTH [Concomitant]
  5. MULTIVITAMIN [Concomitant]

REACTIONS (1)
  - Nausea [Unknown]
